FAERS Safety Report 16094425 (Version 1)
Quarter: 2019Q1

REPORT INFORMATION
  Report Type: Spontaneous
  Country: US (occurrence: US)
  Receive Date: 20190320
  Receipt Date: 20190320
  Transmission Date: 20190418
  Serious: No
  Sender: FDA-Public Use
  Company Number: US-PFIZER INC-2019116750

PATIENT
  Age: 47 Year
  Sex: Female
  Weight: 66 kg

DRUGS (1)
  1. IBRANCE [Suspect]
     Active Substance: PALBOCICLIB
     Indication: BREAST CANCER METASTATIC
     Dosage: 100 MG, CYCLIC [DAY 1-21 WITH 7 DAYS OFF]
     Route: 048
     Dates: start: 201810

REACTIONS (8)
  - Fatigue [Unknown]
  - Ovulation disorder [Unknown]
  - Food craving [Unknown]
  - Swelling [Unknown]
  - Premenstrual syndrome [Unknown]
  - Abdominal distension [Unknown]
  - Muscle tightness [Unknown]
  - Pruritus [Unknown]
